FAERS Safety Report 6817638-4 (Version None)
Quarter: 2010Q3

REPORT INFORMATION
  Report Type: 
  Country: None (occurrence: None)
  Receive Date: 20100706
  Receipt Date: 20100702
  Transmission Date: 20110219
  Serious: Yes (Other)
  Sender: FDA-Public Use
  Company Number: CA-WYE-G06233810

PATIENT
  Sex: Female
  Weight: 85 kg

DRUGS (2)
  1. TORISEL [Suspect]
     Indication: METASTATIC RENAL CELL CARCINOMA
     Route: 042
     Dates: start: 20100526, end: 20100602
  2. AVALIDE [Concomitant]
     Indication: HYPERTENSION
     Dosage: ONE HALF OF A 150/12.5 MG TABLET DAILY
     Route: 048

REACTIONS (1)
  - ABDOMINAL PAIN [None]
